FAERS Safety Report 7410141-2 (Version None)
Quarter: 2011Q2

REPORT INFORMATION
  Report Type: 
  Country: None (occurrence: None)
  Receive Date: 20110412
  Receipt Date: 20110408
  Transmission Date: 20111010
  Serious: Yes (Hospitalization)
  Sender: FDA-Public Use
  Company Number: US-KINGPHARMUSA00001-K201100419

PATIENT

DRUGS (1)
  1. SEPTRA [Suspect]
     Dosage: 1TAB BID
     Route: 048
     Dates: end: 20110313

REACTIONS (8)
  - PANCREATITIS [None]
  - LIVER DISORDER [None]
  - ASTHENIA [None]
  - HEPATIC ENZYME INCREASED [None]
  - SPLENOMEGALY [None]
  - BACK PAIN [None]
  - NAUSEA [None]
  - ABDOMINAL PAIN UPPER [None]
